FAERS Safety Report 24351332 (Version 1)
Quarter: 2024Q3

REPORT INFORMATION
  Report Type: Spontaneous
  Country: US (occurrence: None)
  Receive Date: 20240921
  Receipt Date: 20240921
  Transmission Date: 20241017
  Serious: No
  Sender: Public
  Company Number: None

PATIENT
  Age: 60 Year
  Sex: Female
  Weight: 65.25 kg

DRUGS (2)
  1. SYNTHROID [Suspect]
     Active Substance: LEVOTHYROXINE SODIUM
     Indication: Blood cholesterol increased
     Dosage: 120 TABLETS ORAL ?
     Route: 048
     Dates: start: 20240910, end: 20240918
  2. SYNTHROID [Suspect]
     Active Substance: LEVOTHYROXINE SODIUM
     Indication: Thyroid disorder

REACTIONS (4)
  - Arthralgia [None]
  - Headache [None]
  - Lethargy [None]
  - Insomnia [None]

NARRATIVE: CASE EVENT DATE: 20240917
